FAERS Safety Report 15524103 (Version 1)
Quarter: 2018Q4

REPORT INFORMATION
  Report Type: Spontaneous
  Country: US (occurrence: US)
  Receive Date: 20181019
  Receipt Date: 20181019
  Transmission Date: 20190205
  Serious: Yes (Hospitalization, Other)
  Sender: FDA-Public Use
  Company Number: US-JNJFOC-20181019596

PATIENT
  Age: 58 Year
  Sex: Female
  Weight: 63.5 kg

DRUGS (3)
  1. BABY ASPIRIN [Concomitant]
     Active Substance: ASPIRIN
     Dosage: FREQUENCY: EVENING
     Route: 065
  2. SIMPONI ARIA [Suspect]
     Active Substance: GOLIMUMAB
     Indication: RHEUMATOID ARTHRITIS
     Route: 042
     Dates: start: 2014, end: 2018
  3. PROLIA [Concomitant]
     Active Substance: DENOSUMAB
     Route: 065

REACTIONS (10)
  - Sternal fracture [Recovered/Resolved]
  - Splenic rupture [Recovered/Resolved]
  - Pulmonary thrombosis [Unknown]
  - Cervical vertebral fracture [Recovered/Resolved]
  - Thrombosis [Unknown]
  - Rib fracture [Recovered/Resolved]
  - Accident [Unknown]
  - Limb crushing injury [Not Recovered/Not Resolved]
  - Osteoporosis [Not Recovered/Not Resolved]
  - Hypersensitivity [Unknown]

NARRATIVE: CASE EVENT DATE: 2018
